FAERS Safety Report 4581606-6 (Version None)
Quarter: 2005Q1

REPORT INFORMATION
  Report Type: 
  Country: None (occurrence: None)
  Receive Date: 20050214
  Receipt Date: 20041201
  Transmission Date: 20050727
  Serious: No
  Sender: FDA-Public Use
  Company Number: US-GLAXOSMITHKLINE-A0535731A

PATIENT
  Sex: Male

DRUGS (21)
  1. LAMICTAL [Suspect]
     Indication: BIPOLAR DISORDER
     Dosage: 100MG TWICE PER DAY
     Route: 048
  2. PROZAC [Concomitant]
  3. NITROSTAT [Concomitant]
  4. ARICEPT [Concomitant]
  5. FUROSEMIDE [Concomitant]
  6. MIDARINE [Concomitant]
  7. PLAVIX [Concomitant]
  8. ATIVAN [Concomitant]
  9. LOPERAMIDE HCL [Concomitant]
  10. TRICOR [Concomitant]
  11. CRESTOR [Concomitant]
  12. CARVEDILOL [Concomitant]
  13. UNKNOWN MEDICATION [Concomitant]
  14. ALLOPURINOL [Concomitant]
  15. OMEPRAZOLE [Concomitant]
  16. MEMANTINE [Concomitant]
  17. LISINOPRIL [Concomitant]
  18. ISMO [Concomitant]
  19. TOPOTECAN [Concomitant]
  20. WARFARIN SODIUM [Concomitant]
  21. ACETAMINOPHEN [Concomitant]

REACTIONS (1)
  - AFFECT LABILITY [None]
